FAERS Safety Report 4297517-X (Version None)
Quarter: 2004Q1

REPORT INFORMATION
  Report Type: 
  Country: None (occurrence: None)
  Receive Date: 20040126
  Receipt Date: 20031107
  Transmission Date: 20041129
  Serious: No
  Sender: FDA-Public Use
  Company Number: USA031151957

PATIENT
  Age: 13 Year
  Sex: Male
  Weight: 36 kg

DRUGS (4)
  1. STRATTERA [Suspect]
     Indication: ATTENTION DEFICIT/HYPERACTIVITY DISORDER
     Dosage: 40 MG/1 DAY
     Dates: start: 20030501
  2. TRILEPTIN [Concomitant]
  3. LEXAPRO [Concomitant]
  4. RISPERDAL [Concomitant]

REACTIONS (1)
  - THINKING ABNORMAL [None]
